FAERS Safety Report 5701564-8 (Version None)
Quarter: 2008Q2

REPORT INFORMATION
  Report Type: 
  Country: None (occurrence: None)
  Receive Date: 20080408
  Receipt Date: 20080329
  Transmission Date: 20081010
  Serious: Yes (Hospitalization)
  Sender: FDA-Public Use
  Company Number: CHPA2008US05706

PATIENT
  Age: 88 Year
  Sex: Female

DRUGS (2)
  1. PERDIEM OVERNIGHT RELIEF PILLS (NCH)(SENNA GLYCOSIDES (CA SALTS OF PUR [Suspect]
     Indication: CONSTIPATION
     Dosage: 30 MG, QD, ORAL
     Route: 048
  2. DRUG THERAPY NOS (DRUG THERAPY NOS) [Concomitant]

REACTIONS (2)
  - INTENTIONAL DRUG MISUSE [None]
  - IRRITABLE BOWEL SYNDROME [None]
